FAERS Safety Report 13246325 (Version 11)
Quarter: 2021Q1

REPORT INFORMATION
  Report Type: Report from Study
  Country: JP (occurrence: JP)
  Receive Date: 20170217
  Receipt Date: 20210331
  Transmission Date: 20210419
  Serious: Yes (Hospitalization, Other)
  Sender: FDA-Public Use
  Company Number: JP-ARIAD PHARMACEUTICALS, INC-2017JP007753

PATIENT
  Age: 28 Year
  Sex: Male
  Weight: 50 kg

DRUGS (32)
  1. CYLOCIDE [Suspect]
     Active Substance: CYTARABINE
     Dosage: UNK
     Route: 028
     Dates: start: 20161201, end: 20161201
  2. METHOTREXATE. [Suspect]
     Active Substance: METHOTREXATE
     Indication: PRODUCT USED FOR UNKNOWN INDICATION
     Dosage: UNK
     Route: 065
     Dates: start: 20110406
  3. BUSULFEX [Concomitant]
     Active Substance: BUSULFAN
     Indication: CHRONIC MYELOID LEUKAEMIA
     Dosage: 60 MILLIGRAM
     Route: 065
     Dates: start: 20140801, end: 20140810
  4. ENDOXAN                            /00021102/ [Concomitant]
     Active Substance: CYCLOPHOSPHAMIDE
     Dosage: UNK
     Route: 065
     Dates: start: 20140801, end: 20140810
  5. PONATINIB [Suspect]
     Active Substance: PONATINIB
     Indication: CHRONIC MYELOID LEUKAEMIA TRANSFORMATION
     Dosage: 45 MILLIGRAM, QD
     Route: 048
     Dates: start: 20161201, end: 20161203
  6. PONATINIB [Suspect]
     Active Substance: PONATINIB
     Dosage: 30 MILLIGRAM, QD
     Route: 048
     Dates: start: 20180305
  7. PREDNISOLONE. [Concomitant]
     Active Substance: PREDNISOLONE
     Indication: CHRONIC MYELOID LEUKAEMIA
     Dosage: UNK
     Route: 065
     Dates: start: 20110512
  8. ENDOXAN                            /00021102/ [Concomitant]
     Active Substance: CYCLOPHOSPHAMIDE
     Indication: CHRONIC MYELOID LEUKAEMIA
     Dosage: UNK
     Route: 065
     Dates: start: 20110512
  9. CYLOCIDE [Suspect]
     Active Substance: CYTARABINE
     Indication: CHRONIC MYELOID LEUKAEMIA
     Dosage: UNK
     Route: 065
     Dates: start: 20110304
  10. CYLOCIDE [Suspect]
     Active Substance: CYTARABINE
     Dosage: UNK
     Route: 065
     Dates: start: 20140801, end: 20140810
  11. MITOXANTRONE [Concomitant]
     Active Substance: MITOXANTRONE HYDROCHLORIDE
     Indication: CHRONIC MYELOID LEUKAEMIA
     Dosage: UNK
     Route: 065
     Dates: start: 20110304
  12. MITOXANTRONE [Concomitant]
     Active Substance: MITOXANTRONE HYDROCHLORIDE
     Dosage: UNK
     Route: 065
     Dates: start: 20110715
  13. PONATINIB [Suspect]
     Active Substance: PONATINIB
     Indication: CHRONIC MYELOID LEUKAEMIA TRANSFORMATION
     Dosage: 15 MILLIGRAM, QD
     Route: 048
     Dates: start: 20161214, end: 20161218
  14. PROGRAF [Concomitant]
     Active Substance: TACROLIMUS
     Indication: PRODUCT USED FOR UNKNOWN INDICATION
     Dosage: UNK
     Route: 065
  15. ONCOVIN [Concomitant]
     Active Substance: VINCRISTINE SULFATE
     Indication: CHRONIC MYELOID LEUKAEMIA
     Dosage: UNK
     Route: 065
     Dates: start: 20110406
  16. ENDOXAN                            /00021102/ [Concomitant]
     Active Substance: CYCLOPHOSPHAMIDE
     Dosage: UNK
     Route: 065
     Dates: start: 20120204, end: 20120208
  17. CYLOCIDE [Suspect]
     Active Substance: CYTARABINE
     Indication: PRODUCT USED FOR UNKNOWN INDICATION
     Dosage: UNK
     Route: 065
     Dates: start: 20140619, end: 20140621
  18. CYLOCIDE [Suspect]
     Active Substance: CYTARABINE
     Dosage: UNK
     Route: 065
     Dates: start: 20140710, end: 20140712
  19. METHOTREXATE. [Suspect]
     Active Substance: METHOTREXATE
     Indication: CHRONIC MYELOID LEUKAEMIA
     Dosage: UNK
     Route: 065
     Dates: start: 20110905
  20. METHOTREXATE. [Suspect]
     Active Substance: METHOTREXATE
     Indication: CENTRAL NERVOUS SYSTEM LEUKAEMIA
     Dosage: UNK
     Route: 065
     Dates: start: 20140619, end: 20140621
  21. METHOTREXATE. [Suspect]
     Active Substance: METHOTREXATE
     Dosage: UNK
     Route: 024
     Dates: start: 20161124, end: 20161124
  22. ONCOVIN [Concomitant]
     Active Substance: VINCRISTINE SULFATE
     Dosage: UNK
     Route: 065
     Dates: start: 20110512
  23. PONATINIB [Suspect]
     Active Substance: PONATINIB
     Dosage: 15 MILLIGRAM, QD
     Route: 048
     Dates: start: 20170120, end: 20180304
  24. CYLOCIDE [Suspect]
     Active Substance: CYTARABINE
     Dosage: UNK
     Route: 024
     Dates: start: 20161124, end: 20161124
  25. METHOTREXATE. [Suspect]
     Active Substance: METHOTREXATE
     Dosage: UNK
     Route: 028
     Dates: start: 20161201, end: 20161201
  26. LEUNASE [Concomitant]
     Active Substance: ASPARAGINASE
     Indication: CHRONIC MYELOID LEUKAEMIA
     Dosage: UNK
     Route: 065
     Dates: start: 20110512
  27. PONATINIB [Suspect]
     Active Substance: PONATINIB
     Dosage: 30 MILLIGRAM, QD
     Route: 048
     Dates: start: 20161219, end: 20170116
  28. CYLOCIDE [Suspect]
     Active Substance: CYTARABINE
     Indication: CENTRAL NERVOUS SYSTEM LEUKAEMIA
     Dosage: UNK
     Route: 065
     Dates: start: 20110715
  29. METHOTREXATE. [Suspect]
     Active Substance: METHOTREXATE
     Dosage: UNK
     Route: 065
     Dates: start: 20140710, end: 20140712
  30. ITRACONAZOLE. [Concomitant]
     Active Substance: ITRACONAZOLE
     Indication: PROPHYLAXIS
     Dosage: UNK
     Route: 065
  31. ONCOVIN [Concomitant]
     Active Substance: VINCRISTINE SULFATE
     Dosage: UNK
     Route: 065
     Dates: start: 20110905
  32. DAUNOMYCIN                         /00128202/ [Concomitant]
     Active Substance: DAUNORUBICIN HYDROCHLORIDE
     Indication: CHRONIC MYELOID LEUKAEMIA
     Dosage: UNK
     Route: 065
     Dates: start: 20110512

REACTIONS (6)
  - Disseminated intravascular coagulation [Recovering/Resolving]
  - Rash [Recovering/Resolving]
  - Pyelonephritis [Recovering/Resolving]
  - Hepatic function abnormal [Recovering/Resolving]
  - Platelet count decreased [Recovering/Resolving]
  - Pyrexia [Recovered/Resolved]

NARRATIVE: CASE EVENT DATE: 20161202
